FAERS Safety Report 8481065-7 (Version None)
Quarter: 2012Q3

REPORT INFORMATION
  Report Type: 
  Country: None (occurrence: None)
  Receive Date: 20120702
  Receipt Date: 20120622
  Transmission Date: 20120928
  Serious: Yes (Death, Other)
  Sender: FDA-Public Use
  Company Number: PHHY2012JP055843

PATIENT
  Sex: Male
  Weight: 77 kg

DRUGS (20)
  1. KETOPROFEN [Concomitant]
     Indication: MYELODYSPLASTIC SYNDROME
     Dosage: UNK UKN, UNK
     Dates: start: 20110319, end: 20110326
  2. GLAKAY [Concomitant]
     Indication: MYELODYSPLASTIC SYNDROME
     Dosage: 45 MG, UNK
     Route: 048
     Dates: start: 20110121, end: 20110317
  3. EXJADE [Suspect]
     Indication: IRON OVERLOAD
     Dosage: 500 MG, DAILY
     Route: 048
     Dates: start: 20110224, end: 20110616
  4. MUCOSOLVAN [Concomitant]
     Dosage: 45 MG, UNK
     Route: 048
     Dates: start: 20101217, end: 20110116
  5. NAPROXEN [Concomitant]
     Dosage: 400 MG, UNK
     Route: 048
     Dates: start: 20110128, end: 20110616
  6. LANSOPRAZOLE [Concomitant]
     Dosage: 15 MG, UNK
     Route: 048
     Dates: start: 20100223, end: 20110616
  7. CEFEPIME HYDROCHLORIDE [Concomitant]
     Indication: PROPHYLAXIS
     Dosage: 2 G, UNK
     Dates: start: 20110225, end: 20110228
  8. AMOBAN [Concomitant]
     Dosage: UNK UKN, UNK
     Route: 048
     Dates: start: 20110303, end: 20110305
  9. ITRACONAZOLE [Concomitant]
     Indication: MYELODYSPLASTIC SYNDROME
     Dosage: 20 ML, UNK
     Route: 048
     Dates: start: 20110319, end: 20110326
  10. ITRACONAZOLE [Concomitant]
     Dosage: 100 MG, UNK
     Route: 048
     Dates: start: 20110421, end: 20110616
  11. ADONA [Concomitant]
     Indication: MYELODYSPLASTIC SYNDROME
     Dosage: 90 MG, UNK
     Route: 048
     Dates: start: 20110512
  12. SLOW-K [Concomitant]
     Dosage: 1200 MG, UNK
     Route: 048
     Dates: start: 20110309, end: 20110616
  13. MAGLAX [Concomitant]
     Dosage: 1980 MG, UNK
     Route: 050
     Dates: start: 20101205, end: 20110616
  14. ISOTONIC SOLUTIONS [Concomitant]
     Indication: PROPHYLAXIS
     Dosage: 200 L, UNK
     Dates: start: 20110202, end: 20110228
  15. BROTIZOLAM [Concomitant]
     Dosage: UNK UKN, UNK
     Route: 048
     Dates: start: 20110323
  16. PREDNISOLONE [Concomitant]
     Indication: MYELODYSPLASTIC SYNDROME
     Dosage: 5 MG, UNK
     Route: 048
     Dates: start: 20110421, end: 20110616
  17. PRIMOBOLAN-DEPOT INJ [Concomitant]
     Indication: MYELODYSPLASTIC SYNDROME
     Dosage: 20 MG, UNK
     Route: 048
     Dates: start: 20110121, end: 20110324
  18. ALFAROL [Concomitant]
     Dosage: 1 UG, UNK
     Route: 048
     Dates: start: 20110121, end: 20110317
  19. MAXIPIME [Concomitant]
     Indication: PROPHYLAXIS
     Dosage: 2 G, UNK
     Dates: start: 20110202, end: 20110224
  20. BROCIN-CODEINE [Concomitant]
     Dosage: 6 ML, UNK
     Route: 048
     Dates: start: 20101207, end: 20110616

REACTIONS (9)
  - CONDITION AGGRAVATED [None]
  - LUNG NEOPLASM MALIGNANT [None]
  - HYPOPHAGIA [None]
  - PNEUMONIA [None]
  - PLEURAL EFFUSION [None]
  - RESPIRATORY DISTRESS [None]
  - DECREASED APPETITE [None]
  - MALAISE [None]
  - HEART RATE DECREASED [None]
